FAERS Safety Report 25342064 (Version 2)
Quarter: 2025Q2

REPORT INFORMATION
  Report Type: Spontaneous
  Country: FR (occurrence: FR)
  Receive Date: 20250521
  Receipt Date: 20250626
  Transmission Date: 20250717
  Serious: Yes (Hospitalization)
  Sender: SANOFI AVENTIS
  Company Number: None

PATIENT
  Age: 33 Year
  Sex: Male
  Weight: 91 kg

DRUGS (11)
  1. AMOXICILLIN\CLAVULANATE POTASSIUM [Suspect]
     Active Substance: AMOXICILLIN\CLAVULANATE POTASSIUM
     Indication: Pneumonia aspiration
     Dosage: 3 G, QD
     Route: 042
     Dates: start: 20250424, end: 20250430
  2. AMOXICILLIN [Suspect]
     Active Substance: AMOXICILLIN
     Indication: Pneumonia aspiration
     Route: 048
     Dates: start: 20250501, end: 20250501
  3. LOVENOX [Suspect]
     Active Substance: ENOXAPARIN SODIUM
     Indication: Pneumonia aspiration
     Dosage: 1 DF, QD
     Route: 058
     Dates: start: 20250424, end: 20250502
  4. LOVENOX [Suspect]
     Active Substance: ENOXAPARIN SODIUM
     Indication: Phlebitis
  5. IOMERON [Suspect]
     Active Substance: IOMEPROL
     Indication: Computerised tomogram
     Route: 042
     Dates: start: 20250424, end: 20250424
  6. TERBUTALINE SULFATE [Concomitant]
     Active Substance: TERBUTALINE SULFATE
     Dosage: 15 MG, QD (5 MG MORNING, NOON AND EVENING)
     Route: 055
     Dates: start: 20250425
  7. IPRATROPIUM BROMIDE [Concomitant]
     Active Substance: IPRATROPIUM BROMIDE
     Dosage: 1 DF, QD (INHALATION MORNING, NOON AND EVENING)
     Route: 055
     Dates: start: 20250424, end: 20250425
  8. CHOLECALCIFEROL\SODIUM FLUORIDE [Concomitant]
     Active Substance: CHOLECALCIFEROL\SODIUM FLUORIDE
     Route: 055
     Dates: start: 20250426
  9. DAFALGAN [Concomitant]
     Active Substance: ACETAMINOPHEN
     Route: 048
     Dates: end: 20250428
  10. TOBREX [Concomitant]
     Active Substance: TOBRAMYCIN
     Dosage: 1 DF, QD (MORNING, NOON AND EVENING)
     Route: 031
     Dates: start: 20250428, end: 20250501
  11. METOCLOPRAMIDE [Concomitant]
     Active Substance: METOCLOPRAMIDE
     Route: 030
     Dates: start: 20250425, end: 20250425

REACTIONS (1)
  - Rash maculo-papular [Recovered/Resolved]

NARRATIVE: CASE EVENT DATE: 20250502
